FAERS Safety Report 16641832 (Version 1)
Quarter: 2019Q3

REPORT INFORMATION
  Report Type: Spontaneous
  Country: US (occurrence: US)
  Receive Date: 20190729
  Receipt Date: 20190729
  Transmission Date: 20191004
  Serious: Yes (Other)
  Sender: FDA-Public Use
  Company Number: US-BAYER-2019-133660

PATIENT
  Age: 80 Year
  Sex: Female
  Weight: 96 kg

DRUGS (5)
  1. PHILLIPS^ LIQUID GELS STOOL SOFTENER [Suspect]
     Active Substance: DOCUSATE SODIUM
     Indication: GASTROINTESTINAL DISORDER
     Dosage: 1 DF, ONCE
     Route: 048
     Dates: start: 2019, end: 2019
  2. THERAGRAN M [Concomitant]
     Active Substance: VITAMINS
  3. PHILLIPS^ LIQUID GELS STOOL SOFTENER [Suspect]
     Active Substance: DOCUSATE SODIUM
     Indication: DYSCHEZIA
  4. JET ALERT [Concomitant]
     Active Substance: CAFFEINE
     Dosage: ONCE OR TWICE, QD
  5. PHILLIPS^ LIQUID GELS STOOL SOFTENER [Suspect]
     Active Substance: DOCUSATE SODIUM
     Indication: CONSTIPATION
     Dosage: 1 DF
     Route: 048
     Dates: start: 20190713, end: 20190715

REACTIONS (3)
  - Haematochezia [Recovered/Resolved]
  - Diarrhoea [Recovered/Resolved]
  - Dyschezia [Unknown]

NARRATIVE: CASE EVENT DATE: 20190714
